FAERS Safety Report 19410831 (Version 1)
Quarter: 2021Q2

REPORT INFORMATION
  Report Type: Spontaneous
  Country: JP (occurrence: JP)
  Receive Date: 20210614
  Receipt Date: 20210614
  Transmission Date: 20210717
  Serious: Yes (Hospitalization, Other)
  Sender: FDA-Public Use
  Company Number: JP-MACLEODS PHARMACEUTICALS US LTD-MAC2021031453

PATIENT

DRUGS (3)
  1. ASPIRIN 100 MG [Suspect]
     Active Substance: ASPIRIN
     Indication: PRODUCT USED FOR UNKNOWN INDICATION
     Dosage: 100 MILLIGRAM
     Route: 065
  2. CLOPIDOGREL [Suspect]
     Active Substance: CLOPIDOGREL BISULFATE
     Indication: CARDIOVASCULAR EVENT PROPHYLAXIS
     Dosage: 75 MILLIGRAM
     Route: 065
  3. WARFARIN [Suspect]
     Active Substance: WARFARIN
     Indication: PRODUCT USED FOR UNKNOWN INDICATION
     Dosage: 3 MILLIGRAM
     Route: 065

REACTIONS (3)
  - Haemorrhagic cholecystitis [Recovered/Resolved]
  - Cholecystitis acute [Recovered/Resolved]
  - Haemobilia [Recovered/Resolved]
